FAERS Safety Report 12365820 (Version 2)
Quarter: 2016Q2

REPORT INFORMATION
  Report Type: Spontaneous
  Country: US (occurrence: US)
  Receive Date: 20160513
  Receipt Date: 20160603
  Transmission Date: 20160815
  Serious: Yes (Other)
  Sender: FDA-Public Use
  Company Number: PHHY2016US064824

PATIENT
  Age: 67 Year
  Sex: Male

DRUGS (2)
  1. ZOLEDRONATE [Suspect]
     Active Substance: ZOLEDRONIC ACID
     Indication: LUNG ADENOCARCINOMA METASTATIC
     Dosage: UNK
     Route: 042
  2. ZOLEDRONATE [Suspect]
     Active Substance: ZOLEDRONIC ACID
     Indication: METASTASES TO BONE

REACTIONS (6)
  - Erythema [Recovered/Resolved]
  - Eyelid ptosis [Recovered/Resolved]
  - Eye movement disorder [Recovered/Resolved]
  - Periorbital oedema [Recovered/Resolved]
  - Product use issue [Unknown]
  - Parophthalmia [Recovered/Resolved]
